FAERS Safety Report 15682240 (Version 1)
Quarter: 2018Q4

REPORT INFORMATION
  Report Type: Spontaneous
  Country: US (occurrence: US)
  Receive Date: 20181203
  Receipt Date: 20181203
  Transmission Date: 20190205
  Serious: Yes (Other)
  Sender: FDA-Public Use
  Company Number: PHEH2018US050031

PATIENT
  Sex: Female

DRUGS (2)
  1. MELATONIN [Suspect]
     Active Substance: MELATONIN
     Indication: PRODUCT USED FOR UNKNOWN INDICATION
     Dosage: UNK
     Route: 065
  2. RIVASTIGMINE. [Suspect]
     Active Substance: RIVASTIGMINE
     Indication: PRODUCT USED FOR UNKNOWN INDICATION
     Dosage: 6.9 MG QD (PATCH 7.5 (CM2), 13.5 MG RIVASTIGMINE BASE)
     Route: 062

REACTIONS (5)
  - Blister [Unknown]
  - Vomiting [Unknown]
  - Erythema [Unknown]
  - Diarrhoea [Unknown]
  - Application site rash [Unknown]
